FAERS Safety Report 10785921 (Version 1)
Quarter: 2015Q1

REPORT INFORMATION
  Report Type: Spontaneous
  Country: US (occurrence: None)
  Receive Date: 20150210
  Receipt Date: 20150210
  Transmission Date: 20150721
  Serious: Yes (Life-Threatening, Disabling, Other)
  Sender: FDA-Public Use
  Company Number: None

PATIENT
  Age: 57 Year
  Sex: Female
  Weight: 61.24 kg

DRUGS (2)
  1. EYE DROPS EPINEPHRINE [Suspect]
     Active Substance: EPINEPHRINE
  2. LIBRIUM [Concomitant]
     Active Substance: CHLORDIAZEPOXIDE HYDROCHLORIDE

REACTIONS (4)
  - Agitation [None]
  - Abasia [None]
  - Blindness [None]
  - Pollakiuria [None]

NARRATIVE: CASE EVENT DATE: 20150205
